FAERS Safety Report 8269310-4 (Version None)
Quarter: 2012Q2

REPORT INFORMATION
  Report Type: 
  Country: None (occurrence: None)
  Receive Date: 20120409
  Receipt Date: 20120327
  Transmission Date: 20120825
  Serious: Yes (Other)
  Sender: FDA-Public Use
  Company Number: PT-ROCHE-1054492

PATIENT
  Sex: Female
  Weight: 53.073 kg

DRUGS (5)
  1. XOLAIR [Suspect]
     Indication: ASTHMA
     Dates: start: 20111107
  2. FLUTICASONE PROPIONATE [Concomitant]
  3. LEVOCETIRIZINE DIHYDROCHLORIDE [Concomitant]
  4. IPRATROPIUM BROMIDE [Concomitant]
  5. XOLAIR [Suspect]
     Dates: start: 20090101

REACTIONS (1)
  - ASTHMA [None]
